FAERS Safety Report 15629901 (Version 4)
Quarter: 2019Q1

REPORT INFORMATION
  Report Type: Report from Study
  Country: None (occurrence: US)
  Receive Date: 20181117
  Receipt Date: 20190318
  Transmission Date: 20190417
  Serious: Yes (Hospitalization, Other)
  Sender: FDA-Public Use
  Company Number: US-ABBVIE-18K-163-2554557-00

PATIENT
  Age: 60 Year
  Sex: Female
  Weight: 81.72 kg

DRUGS (3)
  1. HUMIRA [Suspect]
     Active Substance: ADALIMUMAB
     Indication: CROHN^S DISEASE
     Route: 058
  2. OMEPRAZOLE. [Suspect]
     Active Substance: OMEPRAZOLE
     Indication: PRODUCT USED FOR UNKNOWN INDICATION
     Route: 065
  3. METHOTREXATE. [Suspect]
     Active Substance: METHOTREXATE
     Indication: PRODUCT USED FOR UNKNOWN INDICATION
     Route: 065

REACTIONS (16)
  - Fractured sacrum [Not Recovered/Not Resolved]
  - Fatigue [Unknown]
  - Pelvic fracture [Unknown]
  - Osteoporosis [Unknown]
  - Haematuria [Unknown]
  - Muscle spasms [Unknown]
  - Urinary retention [Unknown]
  - Haemorrhage [Recovered/Resolved]
  - Back pain [Unknown]
  - Fibromyalgia [Unknown]
  - Back pain [Recovered/Resolved]
  - Rectal haemorrhage [Unknown]
  - Renal impairment [Unknown]
  - Dehydration [Unknown]
  - Malaise [Unknown]
  - Diarrhoea [Unknown]

NARRATIVE: CASE EVENT DATE: 201808
